FAERS Safety Report 9587761 (Version 1)
Quarter: 2013Q4

REPORT INFORMATION
  Report Type: Spontaneous
  Country: US (occurrence: US)
  Receive Date: 20131003
  Receipt Date: 20131003
  Transmission Date: 20140711
  Serious: No
  Sender: FDA-Public Use
  Company Number: US-COVIDIEN/TYCO HEALTHCARE/MALLINCKRODT-T201304434

PATIENT
  Age: 49 Year
  Sex: Female
  Weight: 63.49 kg

DRUGS (5)
  1. EXALGO EXTENDED RELEASE [Suspect]
     Indication: BACK PAIN
     Dosage: 16 MG X 2, QD
     Route: 048
     Dates: start: 201303
  2. HYDROMORPHONE [Suspect]
     Indication: BACK PAIN
     Dosage: 2 MG, QID
     Route: 048
     Dates: start: 201303
  3. ALPRAZOLAM [Concomitant]
     Indication: ANXIETY
     Dosage: 1 MG, TID
     Route: 048
  4. AMITRIPTYLINE [Concomitant]
     Indication: MIGRAINE
     Dosage: 150 MG, QD
     Route: 048
  5. SEROQUEL [Concomitant]
     Indication: ANXIETY
     Dosage: 100 MG X 4, QD
     Route: 048

REACTIONS (2)
  - Cystitis [Recovered/Resolved]
  - Drug level increased [Unknown]
